FAERS Safety Report 19275646 (Version 1)
Quarter: 2021Q2

REPORT INFORMATION
  Report Type: Report from Study
  Country: TR (occurrence: TR)
  Receive Date: 20210519
  Receipt Date: 20210519
  Transmission Date: 20210717
  Serious: Yes (Hospitalization, Other)
  Sender: FDA-Public Use
  Company Number: TR-VIIV HEALTHCARE LIMITED-TR2020GSK261720

PATIENT
  Weight: 3.23 kg

DRUGS (2)
  1. NEVIRAPINE. [Concomitant]
     Active Substance: NEVIRAPINE
     Indication: PROPHYLAXIS AGAINST HIV INFECTION
     Dosage: UNK, 7 MG/KG BID OR 200 MG/M2 BID
  2. ZIDOVUDINE. [Suspect]
     Active Substance: ZIDOVUDINE
     Indication: PROPHYLAXIS AGAINST HIV INFECTION
     Dosage: UNK
     Route: 064

REACTIONS (3)
  - HIV infection [Unknown]
  - Vertical infection transmission [Unknown]
  - Foetal exposure during pregnancy [Unknown]
